FAERS Safety Report 8718458 (Version 3)
Quarter: 2012Q4

REPORT INFORMATION
  Report Type: 
  Country: US (occurrence: US)
  Receive Date: 20120810
  Receipt Date: 20121102
  Transmission Date: 20130627
  Serious: Yes (Hospitalization, Other)
  Sender: FDA-Public Use
  Company Number: US-ROCHE-1065800

PATIENT
  Sex: Female
  Weight: 81.72 kg

DRUGS (12)
  1. ACCUTANE [Suspect]
     Indication: PSORIASIS
     Route: 048
     Dates: start: 199704
  2. ACCUTANE [Suspect]
     Route: 048
     Dates: start: 20000121, end: 20000221
  3. ACCUTANE [Suspect]
     Route: 048
     Dates: start: 20000705, end: 20000918
  4. ACCUTANE [Suspect]
     Route: 048
     Dates: start: 20001013, end: 20001113
  5. ACCUTANE [Suspect]
     Route: 048
     Dates: start: 20010111, end: 20010211
  6. ACCUTANE [Suspect]
     Route: 048
     Dates: start: 20011203, end: 20020405
  7. ACCUTANE [Suspect]
     Route: 048
     Dates: start: 20030303, end: 20030612
  8. ACCUTANE [Suspect]
     Route: 048
     Dates: start: 20030930, end: 20031029
  9. ACCUTANE [Suspect]
     Route: 048
     Dates: start: 20040413
  10. CELEBREX [Concomitant]
  11. FUROSEMIDE [Concomitant]
  12. PROMETHAZINE [Concomitant]

REACTIONS (13)
  - Crohn^s disease [Unknown]
  - Inflammatory bowel disease [Unknown]
  - Depression [Unknown]
  - Suicidal ideation [Unknown]
  - Large intestine polyp [Unknown]
  - Cholangitis sclerosing [Unknown]
  - Irritable bowel syndrome [Unknown]
  - Anaemia [Unknown]
  - Arthritis [Unknown]
  - Back pain [Unknown]
  - Lip dry [Unknown]
  - Eczema asteatotic [Unknown]
  - Alopecia [Unknown]
